FAERS Safety Report 11515555 (Version 1)
Quarter: 2015Q3

REPORT INFORMATION
  Report Type: Spontaneous
  Country: ES (occurrence: ES)
  Receive Date: 20150916
  Receipt Date: 20150916
  Transmission Date: 20151125
  Serious: Yes (Hospitalization)
  Sender: FDA-Public Use
  Company Number: ES-ABBVIE-15P-144-1462280-00

PATIENT
  Age: 67 Year
  Sex: Female

DRUGS (4)
  1. RIBAVIRINE [Suspect]
     Active Substance: RIBAVIRIN
     Indication: HEPATITIS C
     Route: 048
     Dates: start: 20150711, end: 20150818
  2. VIEKIRAX [Suspect]
     Active Substance: OMBITASVIR\PARITAPREVIR\RITONAVIR
     Indication: HEPATITIS C
     Route: 048
     Dates: start: 20150711
  3. EXVIERA [Suspect]
     Active Substance: DASABUVIR
     Indication: HEPATITIS C
     Route: 048
     Dates: start: 20150711
  4. RIBAVIRINE [Suspect]
     Active Substance: RIBAVIRIN
     Route: 048
     Dates: start: 20150818, end: 20150909

REACTIONS (4)
  - Congestive cardiomyopathy [Not Recovered/Not Resolved]
  - Cardiac failure [Recovering/Resolving]
  - Asthenia [Unknown]
  - Acute pulmonary oedema [Recovering/Resolving]

NARRATIVE: CASE EVENT DATE: 20150818
